FAERS Safety Report 14871759 (Version 2)
Quarter: 2019Q1

REPORT INFORMATION
  Report Type: Spontaneous
  Country: US (occurrence: US)
  Receive Date: 20180509
  Receipt Date: 20190313
  Transmission Date: 20190417
  Serious: Yes (Hospitalization)
  Sender: FDA-Public Use
  Company Number: US-JNJFOC-20180508774

PATIENT
  Age: 54 Year
  Sex: Male

DRUGS (3)
  1. INVOKANA [Suspect]
     Active Substance: CANAGLIFLOZIN
     Indication: TYPE 2 DIABETES MELLITUS
     Route: 048
     Dates: end: 20160907
  2. INVOKANA [Suspect]
     Active Substance: CANAGLIFLOZIN
     Indication: TYPE 2 DIABETES MELLITUS
     Dosage: PRIOR TO FIRST MEAL OF THE DAY.
     Route: 048
     Dates: start: 20150903
  3. INVOKANA [Suspect]
     Active Substance: CANAGLIFLOZIN
     Indication: TYPE 2 DIABETES MELLITUS
     Route: 048
     Dates: start: 20151028

REACTIONS (4)
  - Infected skin ulcer [Recovering/Resolving]
  - Osteomyelitis [Recovering/Resolving]
  - Fungal infection [Unknown]
  - Foot amputation [Unknown]

NARRATIVE: CASE EVENT DATE: 201609
